FAERS Safety Report 9029738 (Version 3)
Quarter: 2013Q3

REPORT INFORMATION
  Report Type: Spontaneous
  Country: CA (occurrence: CA)
  Receive Date: 20130124
  Receipt Date: 20130712
  Transmission Date: 20140515
  Serious: Yes (Other)
  Sender: FDA-Public Use
  Company Number: CHPA2013CA001464

PATIENT
  Age: 45 Year
  Sex: Male

DRUGS (1)
  1. OTRIVIN COLD + ALLERGY MEASURED DOSE PUMP [Suspect]
     Indication: NASAL DISORDER
     Dosage: 1 SPRAY EACH NOSTRIL DAILY AT BEDTIME

REACTIONS (7)
  - Nasal inflammation [Not Recovered/Not Resolved]
  - Nasal discomfort [Not Recovered/Not Resolved]
  - Dyspnoea [Unknown]
  - Epistaxis [Unknown]
  - Drug hypersensitivity [Unknown]
  - Off label use [Unknown]
  - Incorrect drug administration duration [Unknown]
